FAERS Safety Report 7593637-2 (Version None)
Quarter: 2011Q3

REPORT INFORMATION
  Report Type: 
  Country: None (occurrence: None)
  Receive Date: 20110706
  Receipt Date: 20110630
  Transmission Date: 20111222
  Serious: Yes (Hospitalization)
  Sender: FDA-Public Use
  Company Number: PHHO2011US11224

PATIENT
  Age: 69 Year
  Sex: Male
  Weight: 102.96 kg

DRUGS (4)
  1. AFINITOR [Suspect]
     Indication: GLIOBLASTOMA MULTIFORME
     Dosage: 2.5 MG/DAY DURING RADIATION / 10 MG/DAY POST RADIATION
     Route: 048
     Dates: start: 20110411, end: 20110628
  2. COUMADIN [Suspect]
  3. RADIATION THERAPY [Concomitant]
     Indication: GLIOBLASTOMA MULTIFORME
     Dosage: UNK
  4. TEMOZOLOMIDE [Concomitant]
     Indication: GLIOBLASTOMA MULTIFORME

REACTIONS (1)
  - INTERNATIONAL NORMALISED RATIO INCREASED [None]
